FAERS Safety Report 14737917 (Version 1)
Quarter: 2018Q2

REPORT INFORMATION
  Report Type: Spontaneous
  Country: US (occurrence: US)
  Receive Date: 20180409
  Receipt Date: 20180409
  Transmission Date: 20180711
  Serious: No
  Sender: FDA-Public Use
  Company Number: US-NEUROCRINE BIOSCIENCES INC.-2018NBI00699

PATIENT
  Sex: Male

DRUGS (3)
  1. INVEGA [Concomitant]
     Active Substance: PALIPERIDONE
     Dates: start: 2014
  2. INGREZZA [Suspect]
     Active Substance: VALBENAZINE
     Route: 048
     Dates: start: 201711, end: 20180301
  3. INGREZZA [Suspect]
     Active Substance: VALBENAZINE
     Indication: TARDIVE DYSKINESIA
     Route: 048
     Dates: start: 20171121, end: 201711

REACTIONS (1)
  - Anxiety [Unknown]
